FAERS Safety Report 5662948-X (Version None)
Quarter: 2008Q1

REPORT INFORMATION
  Report Type: 
  Country: None (occurrence: None)
  Receive Date: 20080313
  Receipt Date: 20080303
  Transmission Date: 20080703
  Serious: Yes (Death, Hospitalization, Other)
  Sender: FDA-Public Use
  Company Number: CH-ROCHE-551906

PATIENT
  Age: 80 Year
  Sex: Female

DRUGS (2)
  1. XELODA [Suspect]
     Route: 065
  2. BRIVUDINE [Interacting]
     Indication: HERPES ZOSTER
     Route: 065

REACTIONS (9)
  - DEATH [None]
  - DIARRHOEA [None]
  - DRUG INTERACTION [None]
  - LEUKOPENIA [None]
  - RENAL IMPAIRMENT [None]
  - SHOCK [None]
  - STEVENS-JOHNSON SYNDROME [None]
  - THROMBOCYTOPENIA [None]
  - VOMITING [None]
